FAERS Safety Report 18592815 (Version 1)
Quarter: 2020Q4

REPORT INFORMATION
  Report Type: Spontaneous
  Country: US (occurrence: US)
  Receive Date: 20201208
  Receipt Date: 20201208
  Transmission Date: 20210114
  Serious: Yes (Death, Hospitalization)
  Sender: FDA-Public Use
  Company Number: US-TAKEDA-2020TUS053402

PATIENT
  Sex: Male
  Weight: 90.7 kg

DRUGS (20)
  1. STIOLTO RESPIMAT [Concomitant]
     Active Substance: OLODATEROL HYDROCHLORIDE\TIOTROPIUM BROMIDE MONOHYDRATE
  2. GAMMAGARD LIQUID [Suspect]
     Active Substance: HUMAN IMMUNOGLOBULIN G
     Indication: IMMUNODEFICIENCY COMMON VARIABLE
     Dosage: 12 GRAM, 1/WEEK
     Route: 058
     Dates: start: 20130130
  3. NEXIUM I.V. [Concomitant]
     Active Substance: ESOMEPRAZOLE SODIUM
  4. HCTZ [Concomitant]
     Active Substance: HYDROCHLOROTHIAZIDE
  5. FUROSEMIDE. [Concomitant]
     Active Substance: FUROSEMIDE
  6. FLOVENT [Concomitant]
     Active Substance: FLUTICASONE PROPIONATE
  7. FERROUS SULFATE. [Concomitant]
     Active Substance: FERROUS SULFATE
  8. AMLODIPINE [Concomitant]
     Active Substance: AMLODIPINE BESYLATE
  9. VENTOLIN [Concomitant]
     Active Substance: ALBUTEROL SULFATE
  10. ALLOPURINOL. [Concomitant]
     Active Substance: ALLOPURINOL
  11. ARTHROTEC [Concomitant]
     Active Substance: DICLOFENAC SODIUM\MISOPROSTOL
  12. CLONIDINE. [Concomitant]
     Active Substance: CLONIDINE
  13. ECOTRIN [Concomitant]
     Active Substance: ASPIRIN
  14. LIPITOR [Concomitant]
     Active Substance: ATORVASTATIN CALCIUM
  15. EPINEPHRINE. [Concomitant]
     Active Substance: EPINEPHRINE
  16. BYSTOLIC [Concomitant]
     Active Substance: NEBIVOLOL HYDROCHLORIDE
  17. AZITHROMYCIN ANHYDROUS. [Concomitant]
     Active Substance: AZITHROMYCIN ANHYDROUS
  18. FLOMAX [Concomitant]
     Active Substance: TAMSULOSIN HYDROCHLORIDE
  19. CENTRUM SILVER [ASCORBIC ACID;BIOTIN;CALCIUM;CALCIUM PANTOTHENATE;CHLO [Concomitant]
  20. DIPHENHYDRAMINE. [Concomitant]
     Active Substance: DIPHENHYDRAMINE

REACTIONS (2)
  - COVID-19 [Fatal]
  - Product dose omission issue [Unknown]
